FAERS Safety Report 17488586 (Version 1)
Quarter: 2020Q1

REPORT INFORMATION
  Report Type: Spontaneous
  Country: US (occurrence: US)
  Receive Date: 20200220
  Receipt Date: 20200220
  Transmission Date: 20200409
  Serious: Yes (Other)
  Sender: FDA-Public Use
  Company Number: None

PATIENT

DRUGS (1)
  1. CREST WHITENING SYSTEMS STRIPS + LIGHT [Suspect]
     Active Substance: HYDROGEN PEROXIDE
     Route: 048

REACTIONS (2)
  - Hyperaesthesia teeth [None]
  - Tooth injury [None]
